FAERS Safety Report 6177760-5 (Version None)
Quarter: 2009Q2

REPORT INFORMATION
  Report Type: 
  Country: None (occurrence: None)
  Receive Date: 20090504
  Receipt Date: 20090115
  Transmission Date: 20091009
  Serious: No
  Sender: FDA-Public Use
  Company Number: US-ALEXION-A200800408

PATIENT
  Sex: Female

DRUGS (6)
  1. SOLIRIS [Suspect]
     Indication: PAROXYSMAL NOCTURNAL HAEMOGLOBINURIA
     Dosage: 600 MG, QW
     Route: 042
     Dates: start: 20080819, end: 20080909
  2. SOLIRIS [Suspect]
     Dosage: 900 G, Q2W
     Route: 042
     Dates: start: 20080916
  3. TYLENOL (CAPLET) [Concomitant]
     Dosage: 500 UNK, UNK
  4. BENADRYL [Concomitant]
     Dosage: 25 UNK, UNK
     Route: 042
  5. ASPIRIN [Concomitant]
     Dosage: 325 MG, QD
     Dates: start: 20081125
  6. FOLIC ACID [Concomitant]
     Dosage: UNK
     Dates: start: 20081125

REACTIONS (6)
  - ARTHRALGIA [None]
  - BONE PAIN [None]
  - HEADACHE [None]
  - HOT FLUSH [None]
  - MOBILITY DECREASED [None]
  - NIGHT SWEATS [None]
